FAERS Safety Report 8543562-5 (Version None)
Quarter: 2012Q3

REPORT INFORMATION
  Report Type: 
  Country: None (occurrence: None)
  Receive Date: 20120727
  Receipt Date: 20120716
  Transmission Date: 20120928
  Serious: Yes (Hospitalization)
  Sender: FDA-Public Use
  Company Number: US-BAYER-2012-072297

PATIENT
  Age: 22 Year
  Sex: Female

DRUGS (6)
  1. ALBUTEROL [Concomitant]
  2. URELLE [Concomitant]
  3. ASCORBIC ACID [Concomitant]
     Dosage: 500 MG, UNK
     Route: 048
  4. ALLEGRA [Concomitant]
     Route: 048
  5. YAZ [Suspect]
  6. LITHIUM CARBONATE [Concomitant]
     Route: 048

REACTIONS (1)
  - PULMONARY EMBOLISM [None]
